FAERS Safety Report 9672048 (Version 1)
Quarter: 2013Q4

REPORT INFORMATION
  Report Type: Spontaneous
  Country: GB (occurrence: GB)
  Receive Date: 20131106
  Receipt Date: 20131106
  Transmission Date: 20140711
  Serious: Yes (Other)
  Sender: FDA-Public Use
  Company Number: GB-GLAXOSMITHKLINE-B0940082A

PATIENT
  Age: 75 Year
  Sex: Male
  Weight: 86 kg

DRUGS (1)
  1. ACITRETIN [Suspect]
     Indication: SQUAMOUS CELL CARCINOMA
     Dosage: 25MG PER DAY
     Route: 048
     Dates: start: 20130501, end: 20131001

REACTIONS (1)
  - Renal impairment [Recovered/Resolved]
